FAERS Safety Report 17316397 (Version 2)
Quarter: 2020Q1

REPORT INFORMATION
  Report Type: Report from Study
  Country: CA (occurrence: CA)
  Receive Date: 20200124
  Receipt Date: 20200131
  Transmission Date: 20200409
  Serious: Yes (Hospitalization, Other)
  Sender: FDA-Public Use
  Company Number: NVSC2020CA013466

PATIENT
  Age: 82 Year
  Sex: Female

DRUGS (1)
  1. ERELZI [Suspect]
     Active Substance: ETANERCEPT-SZZS
     Indication: PSORIATIC ARTHROPATHY
     Dosage: 50 MG, QW
     Route: 058
     Dates: start: 20190730

REACTIONS (4)
  - Pericardial effusion [Unknown]
  - Viral infection [Recovering/Resolving]
  - Myocardial infarction [Unknown]
  - Product dose omission [Unknown]

NARRATIVE: CASE EVENT DATE: 202001
